FAERS Safety Report 17142064 (Version 2)
Quarter: 2020Q1

REPORT INFORMATION
  Report Type: Spontaneous
  Country: US (occurrence: US)
  Receive Date: 20191211
  Receipt Date: 20200106
  Transmission Date: 20200409
  Serious: No
  Sender: FDA-Public Use
  Company Number: US-ALEXION PHARMACEUTICALS INC.-A201917887

PATIENT
  Sex: Male

DRUGS (3)
  1. ULTOMIRIS [Suspect]
     Active Substance: RAVULIZUMAB-CWVZ
     Indication: HAEMOPHILIA
     Dosage: 330 ML, OVER 1 HOUR EVRY 2 MONTHS
     Route: 042
     Dates: start: 20191112
  2. ULTOMIRIS [Suspect]
     Active Substance: RAVULIZUMAB-CWVZ
     Indication: ATYPICAL HAEMOLYTIC URAEMIC SYNDROME
     Dosage: EVERY 8 WEEKS
     Route: 042
  3. ULTOMIRIS [Suspect]
     Active Substance: RAVULIZUMAB-CWVZ
     Indication: HAEMOLYTIC ANAEMIA

REACTIONS (2)
  - Off label use [Unknown]
  - Product preparation error [Unknown]
